FAERS Safety Report 5082671-2 (Version None)
Quarter: 2006Q3

REPORT INFORMATION
  Report Type: 
  Country: None (occurrence: None)
  Receive Date: 20060816
  Receipt Date: 20060816
  Transmission Date: 20061208
  Serious: No
  Sender: FDA-Public Use
  Company Number: None

PATIENT
  Age: 51 Year
  Sex: Female
  Weight: 72.5755 kg

DRUGS (1)
  1. BUPROPION HCL [Suspect]
     Indication: DEPRESSION
     Dosage: 1 TABLET 3X A DAY PO
     Route: 048
     Dates: start: 20060813, end: 20060814

REACTIONS (4)
  - CONDITION AGGRAVATED [None]
  - DEPRESSION [None]
  - DRUG INEFFECTIVE [None]
  - THERAPEUTIC RESPONSE UNEXPECTED WITH DRUG SUBSTITUTION [None]
